FAERS Safety Report 12128003 (Version 6)
Quarter: 2016Q2

REPORT INFORMATION
  Report Type: Report from Study
  Country: US (occurrence: US)
  Receive Date: 20160226
  Receipt Date: 20160509
  Transmission Date: 20160815
  Serious: Yes (Hospitalization, Other)
  Sender: FDA-Public Use
  Company Number: US-GILEAD-2016-0200556

PATIENT
  Age: 67 Year
  Sex: Female

DRUGS (2)
  1. AMBRISENTAN [Suspect]
     Active Substance: AMBRISENTAN
     Indication: PRODUCT USED FOR UNKNOWN INDICATION
     Dosage: 10 MG, QD
     Route: 065
     Dates: start: 20130313, end: 20160413
  2. OXYGEN. [Concomitant]
     Active Substance: OXYGEN

REACTIONS (14)
  - Left ventricular dysfunction [Recovered/Resolved]
  - Pain [Unknown]
  - Sluggishness [Unknown]
  - Joint swelling [Unknown]
  - Oxygen saturation decreased [Not Recovered/Not Resolved]
  - Dyspnoea [Not Recovered/Not Resolved]
  - Glaucoma [Not Recovered/Not Resolved]
  - Cardiac failure congestive [Unknown]
  - Pyrexia [Unknown]
  - Fluid retention [Recovered/Resolved]
  - Malaise [Not Recovered/Not Resolved]
  - Oxygen saturation abnormal [Unknown]
  - Nasal congestion [Unknown]
  - Dry skin [Unknown]

NARRATIVE: CASE EVENT DATE: 201602
